FAERS Safety Report 25226209 (Version 1)
Quarter: 2025Q2

REPORT INFORMATION
  Report Type: Spontaneous
  Country: US (occurrence: US)
  Receive Date: 20250422
  Receipt Date: 20250422
  Transmission Date: 20250716
  Serious: No
  Sender: ROCHE
  Company Number: US-ROCHE-10000257590

PATIENT
  Age: 18 Year
  Sex: Female
  Weight: 54.43 kg

DRUGS (4)
  1. XOLAIR PFS [Suspect]
     Active Substance: OMALIZUMAB
     Indication: Food allergy
     Route: 065
     Dates: start: 202411
  2. XOLAIR PFS [Suspect]
     Active Substance: OMALIZUMAB
     Indication: Food allergy
  3. EPIPEN [Concomitant]
     Active Substance: EPINEPHRINE
     Indication: Shock
  4. AUVI-Q [Concomitant]
     Active Substance: EPINEPHRINE
     Indication: Shock

REACTIONS (4)
  - Exposure via skin contact [Unknown]
  - Wound [Unknown]
  - Device malfunction [Unknown]
  - Syringe issue [Unknown]

NARRATIVE: CASE EVENT DATE: 20250409
